FAERS Safety Report 4490687-X (Version None)
Quarter: 2004Q4

REPORT INFORMATION
  Report Type: 
  Country: None (occurrence: None)
  Receive Date: 20041102
  Receipt Date: 20041025
  Transmission Date: 20050328
  Serious: Yes (Death, Life-Threatening)
  Sender: FDA-Public Use
  Company Number: GB-GLAXOSMITHKLINE-B0349293A

PATIENT
  Age: 70 Year
  Sex: Female
  Weight: 50 kg

DRUGS (3)
  1. DIGOXIN [Suspect]
     Dosage: .125MG UNKNOWN
     Route: 048
     Dates: start: 20040317
  2. ADCAL D3 [Concomitant]
     Indication: OSTEOPOROSIS
     Route: 048
     Dates: start: 20040317
  3. CLARITHROMYCIN [Concomitant]
     Indication: INFECTION
     Dosage: 500MG PER DAY
     Route: 048
     Dates: start: 20040317

REACTIONS (3)
  - CARDIAC ARREST [None]
  - THERAPEUTIC AGENT TOXICITY [None]
  - VENTRICULAR FIBRILLATION [None]
